FAERS Safety Report 7384126-9 (Version None)
Quarter: 2011Q1

REPORT INFORMATION
  Report Type: 
  Country: None (occurrence: None)
  Receive Date: 20110330
  Receipt Date: 20110323
  Transmission Date: 20110831
  Serious: Yes (Hospitalization)
  Sender: FDA-Public Use
  Company Number: A0919559A

PATIENT
  Age: 30 Year
  Sex: Male

DRUGS (11)
  1. NEXIUM [Concomitant]
  2. MCT OIL [Concomitant]
  3. LAMICTAL [Suspect]
     Dosage: 25MG PER DAY
     Route: 048
     Dates: start: 20100225
  4. CREON [Concomitant]
  5. AMITRIPTYLINE [Concomitant]
  6. METHADONE [Concomitant]
  7. REGLAN [Concomitant]
  8. ZOFRAN [Concomitant]
  9. ATENOLOL [Concomitant]
  10. MULTIVITAMIN [Concomitant]
  11. LACTULOSE [Concomitant]

REACTIONS (2)
  - CONVULSION [None]
  - GRAND MAL CONVULSION [None]
